FAERS Safety Report 11442726 (Version 3)
Quarter: 2015Q4

REPORT INFORMATION
  Report Type: Spontaneous
  Country: TR (occurrence: TR)
  Receive Date: 20150901
  Receipt Date: 20151124
  Transmission Date: 20160304
  Serious: Yes (Hospitalization, Congenital Anomaly)
  Sender: FDA-Public Use
  Company Number: PHHY2015TR103508

PATIENT
  Age: 37 Week
  Sex: Female
  Weight: 3.8 kg

DRUGS (1)
  1. CARBAMAZEPINE. [Suspect]
     Active Substance: CARBAMAZEPINE
     Indication: FOETAL EXPOSURE DURING PREGNANCY
     Route: 064

REACTIONS (6)
  - Gastric perforation [Recovered/Resolved]
  - Pulmonary hypertension [Recovered/Resolved]
  - Respiratory distress [Recovered/Resolved]
  - Congenital diaphragmatic hernia [Recovered/Resolved]
  - Tachypnoea [Recovered/Resolved]
  - Foetal exposure during pregnancy [Unknown]
